FAERS Safety Report 18244113 (Version 2)
Quarter: 2020Q3

REPORT INFORMATION
  Report Type: Report from Study
  Country: CZ (occurrence: CZ)
  Receive Date: 20200908
  Receipt Date: 20200929
  Transmission Date: 20201103
  Serious: Yes (Life-Threatening, Other)
  Sender: FDA-Public Use
  Company Number: PHHO2017CZ008940

PATIENT
  Age: 61 Year
  Sex: Female
  Weight: 49 kg

DRUGS (7)
  1. SIPONIMOD [Suspect]
     Active Substance: SIPONIMOD
     Indication: SECONDARY PROGRESSIVE MULTIPLE SCLEROSIS
     Dosage: UNK
     Route: 048
     Dates: start: 20141008, end: 20160314
  2. PREGABALIN. [Concomitant]
     Active Substance: PREGABALIN
     Indication: RESTLESS LEGS SYNDROME
     Dosage: 75 MG, BID
     Route: 048
     Dates: start: 20160906
  3. VIGANTOL [Concomitant]
     Indication: PROPHYLAXIS
     Dosage: 5 DRP, QD
     Route: 065
     Dates: start: 20120713
  4. CALCICHEW [Concomitant]
     Active Substance: CALCIUM CARBONATE
     Indication: SUPPLEMENTATION THERAPY
     Dosage: 1 DF, QD (1 TAB)
     Route: 048
     Dates: start: 20061019
  5. BACLOFEN. [Concomitant]
     Active Substance: BACLOFEN
     Indication: MUSCLE SPASTICITY
     Dosage: 20 MG, BID
     Route: 048
     Dates: start: 20101017
  6. BAF312 [Suspect]
     Active Substance: SIPONIMOD
     Indication: SECONDARY PROGRESSIVE MULTIPLE SCLEROSIS
     Dosage: 2 MG, UNK
     Route: 048
     Dates: start: 20160324, end: 20170307
  7. CLONAZEPAM. [Concomitant]
     Active Substance: CLONAZEPAM
     Indication: MUSCLE SPASTICITY
     Dosage: 0.5 MG, QD
     Route: 048
     Dates: start: 20141201

REACTIONS (1)
  - Breast cancer [Recovered/Resolved]

NARRATIVE: CASE EVENT DATE: 20170529
